FAERS Safety Report 7443287-3 (Version None)
Quarter: 2011Q2

REPORT INFORMATION
  Report Type: 
  Country: None (occurrence: None)
  Receive Date: 20110428
  Receipt Date: 20110415
  Transmission Date: 20111010
  Serious: Yes (Death, Hospitalization)
  Sender: FDA-Public Use
  Company Number: DE-ACTELION-A-US2011-47433

PATIENT

DRUGS (22)
  1. PANTOPRAZOLE [Concomitant]
  2. GLUCOFAGE [Concomitant]
  3. PLAVIX [Concomitant]
  4. SYMBICORT [Concomitant]
  5. AMBRISENTAN [Concomitant]
  6. MIXTARD HUMAN 70/30 [Concomitant]
  7. ZOCOR [Concomitant]
  8. NASONEX [Concomitant]
  9. VENTAVIS [Suspect]
     Indication: PULMONARY ARTERIAL HYPERTENSION
     Dosage: TWO TIMES; ONCE 2.5 MCG AND ONCE 5 MCG
     Route: 055
     Dates: start: 20110317, end: 20110317
  10. INNOHEP [Concomitant]
  11. ASAFLOW [Concomitant]
  12. CORUNO [Concomitant]
  13. BURINEX [Concomitant]
  14. MEDROL [Concomitant]
  15. ALLOPURINOL [Concomitant]
  16. OXYGEN [Concomitant]
  17. SEROXAT [Concomitant]
  18. DUPHALAC [Concomitant]
  19. REPAGLINIDE [Concomitant]
  20. ALDACTONE [Concomitant]
  21. ZESTRIL [Concomitant]
  22. SPIRIVA [Concomitant]

REACTIONS (4)
  - EMPHYSEMA [None]
  - DYSPNOEA [None]
  - CONDITION AGGRAVATED [None]
  - PULMONARY HYPERTENSION [None]
